FAERS Safety Report 14737954 (Version 1)
Quarter: 2018Q2

REPORT INFORMATION
  Report Type: Other
  Country: US (occurrence: US)
  Receive Date: 20180409
  Receipt Date: 20180409
  Transmission Date: 20180711
  Serious: Yes (Death)
  Sender: FDA-Public Use
  Company Number: US-ALSI-201800235

PATIENT
  Age: 67 Year
  Sex: Male

DRUGS (1)
  1. CARBON DIOXIDE. [Suspect]
     Active Substance: CARBON DIOXIDE
     Indication: ANGIOGRAM
     Route: 013

REACTIONS (4)
  - Livedo reticularis [Fatal]
  - Intestinal infarction [Fatal]
  - Rhabdomyolysis [Fatal]
  - Off label use [Fatal]
